FAERS Safety Report 9440835 (Version 2)
Quarter: 2013Q3

REPORT INFORMATION
  Report Type: Spontaneous
  Country: JP (occurrence: JP)
  Receive Date: 20130805
  Receipt Date: 20130812
  Transmission Date: 20140515
  Serious: Yes (Other)
  Sender: FDA-Public Use
  Company Number: JP-PFIZER INC-2013221328

PATIENT
  Sex: 0

DRUGS (1)
  1. ZYVOX [Suspect]
     Dosage: 1200 MG/DAY
     Route: 048

REACTIONS (1)
  - Renal impairment [Not Recovered/Not Resolved]
